FAERS Safety Report 5119364-9 (Version None)
Quarter: 2006Q4

REPORT INFORMATION
  Report Type: 
  Country: None (occurrence: None)
  Receive Date: 20061002
  Receipt Date: 20061002
  Transmission Date: 20070319
  Serious: No
  Sender: FDA-Public Use
  Company Number: None

PATIENT
  Sex: Female

DRUGS (3)
  1. LISINOPRIL [Suspect]
     Dosage: TABLET
  2. LANOXIN [Suspect]
     Dosage: TABLET
  3. DIGOXIN [Suspect]
     Dosage: TABLET

REACTIONS (6)
  - DRUG DISPENSING ERROR [None]
  - LABORATORY TEST ABNORMAL [None]
  - MEDICATION ERROR [None]
  - THERAPEUTIC AGENT TOXICITY [None]
  - VISUAL DISTURBANCE [None]
  - WRONG DRUG ADMINISTERED [None]
